FAERS Safety Report 6152554-5 (Version None)
Quarter: 2009Q2

REPORT INFORMATION
  Report Type: 
  Country: None (occurrence: None)
  Receive Date: 20090413
  Receipt Date: 20081215
  Transmission Date: 20091009
  Serious: No
  Sender: FDA-Public Use
  Company Number: US-B.I. PHARMACEUTICALS,INC./RIDGEFIELD-2008-BP-18745BP

PATIENT
  Age: 81 Year
  Sex: Female

DRUGS (8)
  1. MICARDIS [Suspect]
     Indication: HYPERTENSION
     Dosage: 40MG
     Route: 048
     Dates: start: 20081111
  2. FORADIL [Concomitant]
     Indication: ASTHMA
  3. ASMANEX TWISTHALER [Concomitant]
     Indication: ASTHMA
  4. PROVENTIL [Concomitant]
     Indication: ASTHMA
  5. INSULIN [Concomitant]
     Indication: DIABETES MELLITUS
  6. GLIPIZIDE [Concomitant]
     Indication: DIABETES MELLITUS
  7. THEO-DUR [Concomitant]
     Indication: ASTHMA
  8. DILTIAZEM [Concomitant]
     Indication: HYPERTENSION

REACTIONS (3)
  - HYPERTENSION [None]
  - MUSCLE SPASMS [None]
  - TACHYCARDIA [None]
